FAERS Safety Report 5899081-8 (Version None)
Quarter: 2008Q3

REPORT INFORMATION
  Report Type: 
  Country: None (occurrence: None)
  Receive Date: 20080925
  Receipt Date: 20080924
  Transmission Date: 20090109
  Serious: Yes (Hospitalization)
  Sender: FDA-Public Use
  Company Number: DE-WYE-G01707308

PATIENT
  Sex: Female
  Weight: 66 kg

DRUGS (7)
  1. TAZOBACTAM [Suspect]
     Indication: PYREXIA
     Dosage: 13.5G PER DAY
     Route: 042
     Dates: start: 20080204, end: 20080220
  2. TAZOBACTAM [Suspect]
     Indication: PANCYTOPENIA
  3. TAZOBACTAM [Suspect]
     Indication: BRONCHITIS
  4. AUGMENTIN '125' [Concomitant]
     Indication: PYREXIA
     Dosage: 6.6G PER DAY
     Route: 042
     Dates: start: 20080203, end: 20080204
  5. AUGMENTIN '125' [Concomitant]
     Indication: PANCYTOPENIA
  6. AUGMENTIN '125' [Concomitant]
     Indication: BRONCHITIS
  7. PREDNISOLONE [Concomitant]
     Indication: PANCYTOPENIA
     Dosage: HIGH DOSE THERAPY
     Dates: start: 20080201

REACTIONS (7)
  - ARTHROPATHY [None]
  - CHOLANGITIS [None]
  - EMPYEMA [None]
  - HYPOCALCAEMIA [None]
  - PANCYTOPENIA [None]
  - PETECHIAE [None]
  - RASH [None]
